FAERS Safety Report 4432606-8 (Version None)
Quarter: 2004Q3

REPORT INFORMATION
  Report Type: 
  Country: None (occurrence: None)
  Receive Date: 20040823
  Receipt Date: 20040806
  Transmission Date: 20050211
  Serious: Yes (Hospitalization)
  Sender: FDA-Public Use
  Company Number: 8618

PATIENT
  Age: 3 Year
  Sex: Male

DRUGS (3)
  1. METHOTREXATE [Suspect]
     Dosage: 15 MG/M2 WEEKLY PO
     Route: 048
  2. METHOTREXATE [Suspect]
     Dosage: 12 MG MONTHLY IT
     Route: 038
  3. PREDNISOLONE [Concomitant]

REACTIONS (1)
  - SUBDURAL HAEMATOMA [None]
